FAERS Safety Report 7177852-8 (Version None)
Quarter: 2010Q4

REPORT INFORMATION
  Report Type: 
  Country: None (occurrence: None)
  Receive Date: 20101220
  Receipt Date: 20101209
  Transmission Date: 20110411
  Serious: Yes (Other)
  Sender: FDA-Public Use
  Company Number: JP-BRISTOL-MYERS SQUIBB COMPANY-15446529

PATIENT
  Age: 29 Year
  Sex: Female
  Weight: 48 kg

DRUGS (4)
  1. ABILIFY [Suspect]
     Indication: SCHIZOPHRENIA
     Dosage: STARTED AS 3MG FROM 28AUG07-21JAN08(147DAYS)  DOSE INCREASED TO 6MG DAILY ON 22JAN08-ONGOING,
     Route: 048
     Dates: start: 20070828
  2. HIBERNA [Concomitant]
     Dates: start: 19980605, end: 20080807
  3. AKINETON [Concomitant]
     Dates: start: 19980605, end: 20080807
  4. HALOSTEN [Concomitant]
     Dates: start: 19980605, end: 20090115

REACTIONS (2)
  - PREGNANCY [None]
  - PREMATURE LABOUR [None]
